FAERS Safety Report 23835969 (Version 1)
Quarter: 2024Q2

REPORT INFORMATION
  Report Type: Spontaneous
  Country: IT (occurrence: IT)
  Receive Date: 20240509
  Receipt Date: 20240509
  Transmission Date: 20240716
  Serious: Yes (Hospitalization)
  Sender: FDA-Public Use
  Company Number: None

PATIENT
  Age: 70 Year
  Sex: Female
  Weight: 93 kg

DRUGS (4)
  1. PACLITAXEL [Suspect]
     Active Substance: PACLITAXEL
     Indication: Endometrial cancer
     Dosage: FIRST ADMINISTRATION 260MG.
     Dates: start: 20240213, end: 20240213
  2. CARBOPLATIN [Concomitant]
     Active Substance: CARBOPLATIN
     Indication: Endometrial cancer
  3. ENOXAPARIN [Concomitant]
     Active Substance: ENOXAPARIN
     Indication: Hysterectomy
     Dosage: ENOXAPARIN 4000IU ONCE A DAY. THE START AND END DATES OF THE INTAKE ARE?NOT KNOWN.
  4. ATORVASTATIN [Concomitant]
     Active Substance: ATORVASTATIN
     Indication: Dyslipidaemia
     Dosage: ATORVASTATIN 10MG ONCE DAILY. THE START AND END DATES OF THE INTAKE ARE?NOT KNOWN.

REACTIONS (1)
  - Idiosyncratic drug reaction [Recovered/Resolved]

NARRATIVE: CASE EVENT DATE: 20240213
